FAERS Safety Report 16274836 (Version 1)
Quarter: 2019Q2

REPORT INFORMATION
  Report Type: Spontaneous
  Country: BR (occurrence: BR)
  Receive Date: 20190504
  Receipt Date: 20190504
  Transmission Date: 20190711
  Serious: Yes (Death, Other)
  Sender: FDA-Public Use
  Company Number: PHHY2019BR102040

PATIENT
  Age: 52 Year
  Sex: Female

DRUGS (3)
  1. DEXAMETHASONE. [Suspect]
     Active Substance: DEXAMETHASONE
     Indication: DIFFUSE LARGE B-CELL LYMPHOMA
     Dosage: UNK
     Route: 042
  2. CYTARABINE. [Suspect]
     Active Substance: CYTARABINE
     Indication: DIFFUSE LARGE B-CELL LYMPHOMA
     Dosage: UNK
     Route: 065
  3. METHOTREXATE. [Suspect]
     Active Substance: METHOTREXATE
     Indication: DIFFUSE LARGE B-CELL LYMPHOMA
     Dosage: FOUR CYCLES OF HIGH-DOSE
     Route: 065

REACTIONS (9)
  - Seizure [Fatal]
  - Judgement impaired [Fatal]
  - Haematotoxicity [Recovering/Resolving]
  - Hemiparesis [Fatal]
  - Dysphagia [Fatal]
  - Diffuse large B-cell lymphoma recurrent [Fatal]
  - Muscular weakness [Fatal]
  - Somnolence [Fatal]
  - Febrile neutropenia [Recovering/Resolving]
